FAERS Safety Report 23982270 (Version 1)
Quarter: 2024Q2

REPORT INFORMATION
  Report Type: Spontaneous
  Country: US (occurrence: None)
  Receive Date: 20240616
  Receipt Date: 20240616
  Transmission Date: 20240716
  Serious: Yes (Other)
  Sender: FDA-Public Use
  Company Number: None

PATIENT
  Age: 70 Year
  Sex: Female
  Weight: 52.2 kg

DRUGS (1)
  1. RECLAST [Suspect]
     Active Substance: ZOLEDRONIC ACID
     Indication: Osteoporosis
     Dates: start: 20240612

REACTIONS (13)
  - Adverse drug reaction [None]
  - Abdominal pain upper [None]
  - Asthenia [None]
  - Discomfort [None]
  - Gait disturbance [None]
  - Dizziness [None]
  - Hypersomnia [None]
  - Feeling of body temperature change [None]
  - Tremor [None]
  - Tremor [None]
  - Feeding disorder [None]
  - Fatigue [None]
  - Faeces discoloured [None]

NARRATIVE: CASE EVENT DATE: 20240612
